FAERS Safety Report 13793005 (Version 1)
Quarter: 2017Q3

REPORT INFORMATION
  Report Type: Spontaneous
  Country: CH (occurrence: CH)
  Receive Date: 20170726
  Receipt Date: 20170726
  Transmission Date: 20171127
  Serious: Yes (Hospitalization)
  Sender: FDA-Public Use
  Company Number: CH-PFIZER INC-1706347

PATIENT
  Age: 71 Year
  Sex: Male

DRUGS (4)
  1. EFUDIX [Suspect]
     Active Substance: FLUOROURACIL
     Indication: COLON CANCER
     Dosage: NOT REPORTED
     Route: 051
  2. CALCIUM FOLINATE [Suspect]
     Active Substance: LEUCOVORIN CALCIUM
     Indication: COLON CANCER
     Dosage: NOT REPORTED
     Route: 051
  3. AVASTIN /00848101/ [Suspect]
     Active Substance: SIMVASTATIN
     Indication: PRODUCT USED FOR UNKNOWN INDICATION
     Dosage: NOT REPORTED
     Route: 051
  4. ELOXATIN [Suspect]
     Active Substance: OXALIPLATIN
     Indication: COLON CANCER
     Dosage: NOT REPORTED
     Route: 051

REACTIONS (1)
  - Interstitial lung disease [Recovering/Resolving]
